FAERS Safety Report 19749937 (Version 1)
Quarter: 2021Q3

REPORT INFORMATION
  Report Type: Spontaneous
  Country: US (occurrence: US)
  Receive Date: 20210826
  Receipt Date: 20210826
  Transmission Date: 20211014
  Serious: Yes (Other)
  Sender: FDA-Public Use
  Company Number: None

PATIENT
  Age: 66 Year
  Sex: Female
  Weight: 49.14 kg

DRUGS (6)
  1. MELATONIN 3MG [Concomitant]
  2. ALEVE 220 [Concomitant]
  3. OXYCODONE?ACETAMINOPHEN 5/325MG [Concomitant]
  4. VALSARTAN?HCTZ 80?12.5MG [Concomitant]
  5. CAPECITABINE TABLET 500MG [Suspect]
     Active Substance: CAPECITABINE
     Indication: BREAST CANCER
     Route: 048
     Dates: start: 20210821
  6. MULTIVITAMIN ORAL TABLET [Concomitant]
     Active Substance: VITAMINS

REACTIONS (2)
  - Dyspnoea [None]
  - Fatigue [None]

NARRATIVE: CASE EVENT DATE: 20210826
